FAERS Safety Report 7823416-X (Version None)
Quarter: 2011Q4

REPORT INFORMATION
  Report Type: 
  Country: None (occurrence: None)
  Receive Date: 20111014
  Receipt Date: 20111005
  Transmission Date: 20120403
  Serious: Yes (Other)
  Sender: FDA-Public Use
  Company Number: AUR-APL-2011-05273

PATIENT
  Age: 55 Year
  Sex: Female
  Weight: 68.9467 kg

DRUGS (2)
  1. ZOLPIDEM [Suspect]
     Indication: INSOMNIA
     Dosage: (10 MG, 1 D), ORAL
     Route: 048
     Dates: start: 20110826
  2. FISH OIL (FISH OIL) [Concomitant]

REACTIONS (3)
  - ARRHYTHMIA [None]
  - MALAISE [None]
  - HEART RATE INCREASED [None]
